FAERS Safety Report 23253228 (Version 1)
Quarter: 2023Q4

REPORT INFORMATION
  Report Type: Report from Study
  Country: US (occurrence: US)
  Receive Date: 20231202
  Receipt Date: 20231202
  Transmission Date: 20240110
  Serious: Yes (Other)
  Sender: FDA-Public Use
  Company Number: US-ABBVIE-5521364

PATIENT
  Age: 49 Year
  Sex: Male

DRUGS (1)
  1. SKYRIZI [Suspect]
     Active Substance: RISANKIZUMAB-RZAA
     Indication: Psoriasis
     Dosage: FORM STRENGTH: 150 MILLIGRAM
     Route: 058
     Dates: start: 20220210

REACTIONS (3)
  - Coronary artery occlusion [Not Recovered/Not Resolved]
  - Chest pain [Unknown]
  - Cardiovascular insufficiency [Unknown]

NARRATIVE: CASE EVENT DATE: 20230901
